FAERS Safety Report 6303380-5 (Version None)
Quarter: 2009Q3

REPORT INFORMATION
  Report Type: 
  Country: None (occurrence: None)
  Receive Date: 20090810
  Receipt Date: 20090729
  Transmission Date: 20100115
  Serious: Yes (Death, Hospitalization)
  Sender: FDA-Public Use
  Company Number: FR-WYE-H09577109

PATIENT
  Sex: Male

DRUGS (8)
  1. CORDARONE [Suspect]
     Route: 048
     Dates: start: 20090420, end: 20090501
  2. CORDARONE [Suspect]
     Route: 048
     Dates: start: 20090501, end: 20090511
  3. ZOCOR [Concomitant]
     Dosage: UNSPECIFIED
     Route: 048
     Dates: start: 20040101
  4. SERETIDE [Concomitant]
     Dosage: UNSPECIFIED
     Dates: start: 20040101
  5. OMIX [Concomitant]
     Dosage: UNSPECIFIED
     Route: 048
     Dates: start: 20040101
  6. APROVEL [Concomitant]
     Dosage: UNSPECIFIED
     Route: 048
     Dates: start: 20040101
  7. PLAVIX [Concomitant]
     Dosage: UNSPECIFIED
     Route: 048
     Dates: start: 20040101
  8. FUROSEMIDE [Concomitant]
     Route: 048
     Dates: start: 20040101

REACTIONS (2)
  - ACUTE GENERALISED EXANTHEMATOUS PUSTULOSIS [None]
  - RENAL FAILURE [None]
